FAERS Safety Report 13180166 (Version 2)
Quarter: 2018Q3

REPORT INFORMATION
  Report Type: Spontaneous
  Country: CH (occurrence: CH)
  Receive Date: 20170202
  Receipt Date: 20180726
  Transmission Date: 20181010
  Serious: Yes (Other)
  Sender: FDA-Public Use
  Company Number: CH-BAXALTA-2017BLT000611

PATIENT
  Sex: Male
  Weight: 95 kg

DRUGS (3)
  1. BEBULIN [Suspect]
     Active Substance: FACTOR IX COMPLEX
     Indication: PRODUCT USED FOR UNKNOWN INDICATION
     Dosage: UNK
     Route: 065
     Dates: start: 1976, end: 1993
  2. IMMUNINE STIM PLUS (COAGULATION FACTOR IX HUMAN) [Suspect]
     Active Substance: COAGULATION FACTOR IX HUMAN
     Indication: HAEMORRHAGE
  3. IMMUNINE STIM PLUS (COAGULATION FACTOR IX HUMAN) [Suspect]
     Active Substance: COAGULATION FACTOR IX HUMAN
     Indication: FACTOR IX DEFICIENCY
     Route: 042

REACTIONS (4)
  - Quality of life decreased [Unknown]
  - Chronic hepatitis C [Recovered/Resolved]
  - Liver injury [Unknown]
  - Arthropathy [Unknown]

NARRATIVE: CASE EVENT DATE: 1976
